FAERS Safety Report 8399515-3 (Version None)
Quarter: 2012Q2

REPORT INFORMATION
  Report Type: 
  Country: None (occurrence: None)
  Receive Date: 20120531
  Receipt Date: 20120522
  Transmission Date: 20120825
  Serious: Yes (Other)
  Sender: FDA-Public Use
  Company Number: US-JNJFOC-20120517534

PATIENT
  Sex: Female
  Weight: 65.77 kg

DRUGS (9)
  1. METOPROLOL TARTRATE [Concomitant]
     Indication: BLOOD PRESSURE ABNORMAL
     Route: 048
  2. TRAMADOL HCL [Concomitant]
     Indication: PAIN
  3. PRILOSEC [Concomitant]
     Indication: GASTRIC DISORDER
     Route: 048
  4. ACETAMINOPHEN/HYDROCODONE BITARTRATE [Concomitant]
     Indication: PAIN
     Dosage: 5/325 MG
     Route: 048
  5. SIMPONI [Suspect]
     Indication: ANKYLOSING SPONDYLITIS
     Route: 058
     Dates: start: 20120101, end: 20120508
  6. ROPINIROLE [Concomitant]
     Indication: RESTLESS LEGS SYNDROME
     Route: 048
  7. LOSARTAN POTASSIUM AND HYDROCHLOROTHIAZIDE [Concomitant]
     Indication: BLOOD PRESSURE ABNORMAL
     Dosage: 100/25 MG
     Route: 049
  8. SIMVASTATIN [Concomitant]
     Indication: BLOOD CHOLESTEROL ABNORMAL
     Route: 048
  9. BUPROPION HCL [Concomitant]
     Indication: DEPRESSION
     Route: 048

REACTIONS (4)
  - PAIN IN EXTREMITY [None]
  - TOBACCO USER [None]
  - CONDITION AGGRAVATED [None]
  - PANIC ATTACK [None]
